FAERS Safety Report 19966042 (Version 1)
Quarter: 2021Q4

REPORT INFORMATION
  Report Type: Spontaneous
  Country: FR (occurrence: FR)
  Receive Date: 20211018
  Receipt Date: 20211018
  Transmission Date: 20220303
  Serious: Yes (Hospitalization, Other)
  Sender: FDA-Public Use
  Company Number: FI-ASTRAZENECA-2021A357377

PATIENT
  Age: 764 Month
  Sex: Female

DRUGS (23)
  1. PACLITAXEL [Suspect]
     Active Substance: PACLITAXEL
     Indication: Ovarian cancer
     Dosage: 300 MG, EVERY 3 WEEKS
     Route: 042
     Dates: start: 20210413, end: 20210413
  2. PACLITAXEL [Suspect]
     Active Substance: PACLITAXEL
     Dosage: 310 MG, EVERY 3 WEEKS
     Route: 042
     Dates: start: 20210506, end: 20210506
  3. PACLITAXEL [Suspect]
     Active Substance: PACLITAXEL
     Dosage: 310 MG, EVERY 3 WEEKS
     Route: 042
     Dates: start: 20210528, end: 20210528
  4. PACLITAXEL [Suspect]
     Active Substance: PACLITAXEL
     Dosage: 310 MG, EVERY 3 WEEKS
     Route: 042
     Dates: start: 20210617, end: 20210617
  5. PACLITAXEL [Suspect]
     Active Substance: PACLITAXEL
     Dosage: 310 MG, EVERY 3 WEEKS
     Route: 042
     Dates: start: 20210708, end: 20210708
  6. CARBOPLATIN [Suspect]
     Active Substance: CARBOPLATIN
     Indication: Ovarian cancer
     Dosage: 495 MG, EVERY 3 WEEKS
     Route: 042
     Dates: start: 20210413, end: 20210413
  7. CARBOPLATIN [Suspect]
     Active Substance: CARBOPLATIN
     Dosage: 650 MG, EVERY 3 WEEKS
     Route: 042
     Dates: start: 20210506, end: 20210506
  8. CARBOPLATIN [Suspect]
     Active Substance: CARBOPLATIN
     Dosage: 650 MG, EVERY 3 WEEKS
     Route: 042
     Dates: start: 20210528, end: 20210528
  9. CARBOPLATIN [Suspect]
     Active Substance: CARBOPLATIN
     Dosage: 650 MG, EVERY 3 WEEKS
     Route: 042
     Dates: start: 20210617, end: 20210618
  10. CARBOPLATIN [Suspect]
     Active Substance: CARBOPLATIN
     Dosage: 650 MG, EVERY 3 WEEKS
     Route: 042
     Dates: start: 20210708, end: 20210708
  11. OLAPARIB [Suspect]
     Active Substance: OLAPARIB
     Indication: Ovarian cancer
     Dosage: 300 MG, FREQ:12 H;
     Route: 048
  12. DURVALUMAB [Suspect]
     Active Substance: DURVALUMAB
     Indication: Ovarian cancer
     Dosage: 22 ML, EVERY 3 WEEKS
     Route: 042
     Dates: start: 20210506, end: 20210506
  13. DURVALUMAB [Suspect]
     Active Substance: DURVALUMAB
     Dosage: 22 ML, EVERY 3 WEEKS
     Route: 042
     Dates: start: 20210708, end: 20210708
  14. GAVISCON [CALCIUM CARBONATE;POTASSIUM BICARBONATE;SODIUM ALGINATE] [Concomitant]
     Indication: Reflux gastritis
     Dosage: 10 ML, 1X/DAY
     Route: 048
     Dates: start: 20210421
  15. BEVACIZUMAB [Concomitant]
     Active Substance: BEVACIZUMAB
     Indication: Ovarian cancer
     Dosage: 1000 MG, EVERY 3 WEEKS
     Route: 042
     Dates: start: 20210506, end: 20210506
  16. BEVACIZUMAB [Concomitant]
     Active Substance: BEVACIZUMAB
     Dosage: 1000 MG, EVERY 3 WEEKS
     Route: 042
     Dates: start: 20210528, end: 20210528
  17. BEVACIZUMAB [Concomitant]
     Active Substance: BEVACIZUMAB
     Dosage: 1000 MG, EVERY 3 WEEKS
     Route: 042
     Dates: start: 20210617, end: 20210617
  18. NACL (SODIUM, CHLORURE) [Concomitant]
     Indication: Faecal vomiting
     Dosage: 1000 ML, 1X/DAY
     Route: 042
     Dates: start: 20210421
  19. PANTOPRAZOLE [Concomitant]
     Active Substance: PANTOPRAZOLE
     Indication: Reflux gastritis
     Dosage: 10 ML, 1X/DAY
     Route: 042
     Dates: start: 20210421
  20. ACETAMINOPHEN [Concomitant]
     Active Substance: ACETAMINOPHEN
     Indication: Pain
     Dosage: 4 G, 1X/DAY
     Route: 042
     Dates: start: 20210421
  21. PRIMPERAN [Concomitant]
     Active Substance: METOCLOPRAMIDE HYDROCHLORIDE
     Indication: Nausea
     Dosage: 30 MG, 1X/DAY
     Route: 042
     Dates: start: 20210421
  22. MORPHINE SULFATE [Concomitant]
     Active Substance: MORPHINE SULFATE
     Indication: Pain
     Dosage: 5 MG, 1X/DAY
     Route: 048
     Dates: start: 20210421
  23. PHLOROGLUCINOL\1,3,5-TRIMETHOXYBENZENE [Concomitant]
     Active Substance: PHLOROGLUCINOL\1,3,5-TRIMETHOXYBENZENE
     Indication: Pain
     Dosage: 4 ML, 1X/DAY
     Route: 042
     Dates: start: 20210421

REACTIONS (1)
  - Fatigue [Not Recovered/Not Resolved]

NARRATIVE: CASE EVENT DATE: 20210421
